FAERS Safety Report 25805743 (Version 1)
Quarter: 2025Q3

REPORT INFORMATION
  Report Type: Spontaneous
  Country: AR (occurrence: AR)
  Receive Date: 20250916
  Receipt Date: 20250916
  Transmission Date: 20251020
  Serious: Yes (Hospitalization)
  Sender: CSL BEHRING
  Company Number: AR-BEH-2025218671

PATIENT
  Age: 3 Year
  Sex: Female
  Weight: 15 kg

DRUGS (1)
  1. HIZENTRA [Suspect]
     Active Substance: HUMAN IMMUNOGLOBULIN G
     Indication: Humoral immune defect
     Route: 058
     Dates: start: 20250905

REACTIONS (6)
  - Febrile neutropenia [Unknown]
  - Infusion site erythema [Unknown]
  - Infusion site granuloma [Unknown]
  - Infusion site swelling [Unknown]
  - Pyrexia [Unknown]
  - Human rhinovirus test positive [Unknown]

NARRATIVE: CASE EVENT DATE: 20250905
